FAERS Safety Report 13599193 (Version 3)
Quarter: 2017Q2

REPORT INFORMATION
  Report Type: Report from Study
  Country: US (occurrence: US)
  Receive Date: 20170531
  Receipt Date: 20170628
  Transmission Date: 20170830
  Serious: Yes (Hospitalization)
  Sender: FDA-Public Use
  Company Number: US-ACTELION-A-US2017-149702

PATIENT
  Age: 64 Year
  Sex: Female
  Weight: 124.72 kg

DRUGS (19)
  1. MULTIVITAMIN [Concomitant]
     Active Substance: VITAMINS
     Route: 048
  2. RIVAROXABAN [Concomitant]
     Active Substance: RIVAROXABAN
     Dosage: 20 MG, QD
     Route: 048
  3. DIGOXIN. [Concomitant]
     Active Substance: DIGOXIN
     Dosage: 125 MCG, QD
     Route: 048
  4. ADCIRCA [Concomitant]
     Active Substance: TADALAFIL
     Dosage: 40 MG, UNK
     Route: 048
  5. UPTRAVI [Suspect]
     Active Substance: SELEXIPAG
     Indication: PULMONARY ARTERIAL HYPERTENSION
     Dosage: 800 MCG, QAM
     Route: 048
     Dates: start: 20170106
  6. UPTRAVI [Suspect]
     Active Substance: SELEXIPAG
     Dosage: 800 MCG, BID
     Route: 048
     Dates: start: 20170305
  7. ATENOLOL. [Concomitant]
     Active Substance: ATENOLOL
     Dosage: 25 MG, QD
     Route: 048
  8. POTASSIUM CHLORIDE. [Concomitant]
     Active Substance: POTASSIUM CHLORIDE
     Dosage: 20 MEQ, QD
     Route: 048
  9. UPTRAVI [Suspect]
     Active Substance: SELEXIPAG
     Dosage: 200 MCG, BID
     Route: 048
     Dates: start: 20170131
  10. BUMETANIDE. [Concomitant]
     Active Substance: BUMETANIDE
     Dosage: 4 MG, QAM
     Route: 048
  11. LACTOBACI [Concomitant]
     Route: 048
  12. TRAZODONE [Concomitant]
     Active Substance: TRAZODONE HYDROCHLORIDE
     Dosage: 50 MG, PRN
     Route: 048
  13. COUMADIN [Concomitant]
     Active Substance: WARFARIN SODIUM
  14. OXYGEN. [Concomitant]
     Active Substance: OXYGEN
  15. UPTRAVI [Suspect]
     Active Substance: SELEXIPAG
     Dosage: 600 MCG, QPM
     Route: 048
  16. LETAIRIS [Suspect]
     Active Substance: AMBRISENTAN
     Indication: PRODUCT USED FOR UNKNOWN INDICATION
     Route: 065
  17. OMEPRAZOLE. [Concomitant]
     Active Substance: OMEPRAZOLE
     Dosage: 40 MG, QPM
     Route: 048
  18. ONDANSETRON [Concomitant]
     Active Substance: ONDANSETRON
     Dosage: 8 MG, PRN
     Route: 048
  19. UPTRAVI [Suspect]
     Active Substance: SELEXIPAG
     Dosage: 800 MCG AM AND 600 MCG PM
     Route: 048

REACTIONS (32)
  - Diuretic therapy [Unknown]
  - Blood creatinine increased [Unknown]
  - Brain natriuretic peptide increased [Unknown]
  - Rectal haemorrhage [Unknown]
  - Gait disturbance [Unknown]
  - Diarrhoea [Unknown]
  - Palpitations [Not Recovered/Not Resolved]
  - Glomerular filtration rate abnormal [Unknown]
  - Haematochezia [Unknown]
  - Insomnia [Unknown]
  - Nausea [Unknown]
  - Pain in jaw [Unknown]
  - Pleural effusion [Unknown]
  - Atelectasis [Unknown]
  - Haemorrhoidal haemorrhage [Unknown]
  - Dyspnoea [Unknown]
  - Fluid overload [Recovered/Resolved]
  - Heart rate increased [Recovered/Resolved]
  - Weight increased [Unknown]
  - Dyspnoea exertional [Unknown]
  - Pulmonary hypertension [Recovered/Resolved]
  - Fluid retention [Unknown]
  - Oedema [Unknown]
  - Back pain [Unknown]
  - Blood urea increased [Unknown]
  - Oedema peripheral [Recovered/Resolved]
  - Atrial fibrillation [Unknown]
  - Anxiety [Unknown]
  - Cardiac failure acute [Recovered/Resolved]
  - Hyperhidrosis [Unknown]
  - Headache [Unknown]
  - Lymphocyte count decreased [Unknown]
